FAERS Safety Report 14454325 (Version 2)
Quarter: 2018Q2

REPORT INFORMATION
  Report Type: Spontaneous
  Country: AU (occurrence: AU)
  Receive Date: 20180129
  Receipt Date: 20180426
  Transmission Date: 20180711
  Serious: Yes (Hospitalization)
  Sender: FDA-Public Use
  Company Number: AU-PFIZER INC-2018019957

PATIENT
  Age: 66 Year
  Sex: Male

DRUGS (7)
  1. AMLODIPINE BESILATE [Suspect]
     Active Substance: AMLODIPINE BESYLATE
     Indication: SCHIZOAFFECTIVE DISORDER BIPOLAR TYPE
  2. CHOLECALCIFEROL [Concomitant]
     Active Substance: CHOLECALCIFEROL
     Dosage: 1000 IU, ONCE DAILY, IN THE MORNING
     Route: 048
  3. CLOZAPINE. [Suspect]
     Active Substance: CLOZAPINE
     Indication: SCHIZOPHRENIA
     Dosage: 350 MG, ONCE DAILY, AT NIGHT
     Route: 048
     Dates: start: 20050608
  4. CLOPINE [Suspect]
     Active Substance: CLOZAPINE
     Dosage: UNK
     Dates: start: 20110210
  5. CLOZAPINE. [Suspect]
     Active Substance: CLOZAPINE
     Indication: SCHIZOAFFECTIVE DISORDER BIPOLAR TYPE
  6. AMLODIPINE BESILATE [Suspect]
     Active Substance: AMLODIPINE BESYLATE
     Indication: SCHIZOPHRENIA
     Dosage: 5 MG, ONCE DAILY IN THE MORNING
     Route: 048
  7. THEANINE [Concomitant]
     Active Substance: THEANINE
     Dosage: 100 MG, 1X/DAY, MANE
     Route: 048

REACTIONS (3)
  - Delirium [Recovered/Resolved]
  - Infection [Recovered/Resolved]
  - Product use in unapproved indication [Unknown]

NARRATIVE: CASE EVENT DATE: 20171215
